FAERS Safety Report 14553886 (Version 1)
Quarter: 2018Q1

REPORT INFORMATION
  Report Type: Spontaneous
  Country: FR (occurrence: FR)
  Receive Date: 20180220
  Receipt Date: 20180220
  Transmission Date: 20180509
  Serious: Yes (Hospitalization)
  Sender: FDA-Public Use
  Company Number: FR-TEVA-2018-FR-856993

PATIENT
  Age: 56 Year
  Sex: Male
  Weight: 93 kg

DRUGS (2)
  1. ATENOLOL. [Suspect]
     Active Substance: ATENOLOL
     Indication: ACUTE CORONARY SYNDROME
     Dosage: 50 MILLIGRAM DAILY;
     Route: 048
     Dates: start: 20171009, end: 20171012
  2. BRILIQUE 90 MG, [Suspect]
     Active Substance: TICAGRELOR
     Indication: ACUTE CORONARY SYNDROME
     Dosage: 2 MILLIGRAM DAILY; 2 THEN 1 / DAY
     Route: 048
     Dates: start: 20171009, end: 20171014

REACTIONS (2)
  - Sinoatrial block [Recovered/Resolved]
  - Cardiac arrest [Recovered/Resolved]

NARRATIVE: CASE EVENT DATE: 20171012
